FAERS Safety Report 20852798 (Version 3)
Quarter: 2022Q3

REPORT INFORMATION
  Report Type: Spontaneous
  Country: US (occurrence: US)
  Receive Date: 20220520
  Receipt Date: 20220719
  Transmission Date: 20221027
  Serious: No
  Sender: FDA-Public Use
  Company Number: US-BRISTOL-MYERS SQUIBB COMPANY-2022-042735

PATIENT
  Age: 68 Year
  Sex: Male

DRUGS (1)
  1. REVLIMID [Suspect]
     Active Substance: LENALIDOMIDE
     Indication: Plasma cell myeloma
     Dosage: 21 DAYS THEN OFF FOR 7 DAYS
     Route: 048
     Dates: start: 20220421

REACTIONS (3)
  - Malaise [Unknown]
  - Cyst [Recovered/Resolved]
  - Peripheral swelling [Recovered/Resolved]
